FAERS Safety Report 9839218 (Version 4)
Quarter: 2015Q3

REPORT INFORMATION
  Report Type: Spontaneous
  Country: US (occurrence: US)
  Receive Date: 20140123
  Receipt Date: 20150817
  Transmission Date: 20151125
  Serious: No
  Sender: FDA-Public Use
  Company Number: US-GILEAD-2014-0092822

PATIENT
  Age: 55 Year
  Sex: Female

DRUGS (1)
  1. LETAIRIS [Suspect]
     Active Substance: AMBRISENTAN
     Indication: PULMONARY ARTERIAL HYPERTENSION
     Dosage: 5 MG, QD
     Route: 065
     Dates: start: 20110719

REACTIONS (7)
  - Dyspnoea exertional [Unknown]
  - Eye oedema [Unknown]
  - Face oedema [Unknown]
  - Hearing impaired [Unknown]
  - Oedema peripheral [Unknown]
  - Swelling [Unknown]
  - Fatigue [Unknown]
